FAERS Safety Report 6686744-X (Version None)
Quarter: 2010Q2

REPORT INFORMATION
  Report Type: 
  Country: None (occurrence: None)
  Receive Date: 20100419
  Receipt Date: 20100413
  Transmission Date: 20101027
  Serious: Yes (Hospitalization)
  Sender: FDA-Public Use
  Company Number: CG-MERCK-1004USA02141

PATIENT
  Age: 33 Year
  Sex: Male
  Weight: 67 kg

DRUGS (2)
  1. STROMECTOL [Suspect]
     Route: 048
     Dates: start: 20100125
  2. AMODIAQUIN HYDROCHLORIDE AND ARTESUNATE [Concomitant]
     Route: 065

REACTIONS (8)
  - CONJUNCTIVAL HAEMORRHAGE [None]
  - DEHYDRATION [None]
  - DEPRESSED LEVEL OF CONSCIOUSNESS [None]
  - DIARRHOEA [None]
  - ENCEPHALOPATHY [None]
  - EPISTAXIS [None]
  - HEADACHE [None]
  - MALARIA [None]
